FAERS Safety Report 17507643 (Version 6)
Quarter: 2020Q3

REPORT INFORMATION
  Report Type: Report from Study
  Country: DE (occurrence: DE)
  Receive Date: 20200306
  Receipt Date: 20200707
  Transmission Date: 20201102
  Serious: Yes (Hospitalization, Other)
  Sender: FDA-Public Use
  Company Number: DE-BRISTOL-MYERS SQUIBB COMPANY-BMS-2019-122568

PATIENT
  Age: 70 Year
  Sex: Male

DRUGS (5)
  1. HYDROCORTISON [HYDROCORTISONE ACETATE] [Concomitant]
     Indication: PRODUCT USED FOR UNKNOWN INDICATION
     Dosage: UNK
     Route: 065
  2. NIVOLUMAB [Suspect]
     Active Substance: NIVOLUMAB
     Dosage: 240 MILLIGRAM
     Route: 065
     Dates: start: 20200313
  3. NIVOLUMAB [Suspect]
     Active Substance: NIVOLUMAB
     Indication: MALIGNANT MELANOMA
     Dosage: 69.5 MILLIGRAM, Q3WK
     Route: 042
     Dates: start: 20191108, end: 20200117
  4. CETIRIZINE DIHYDROCHLORIDE [Concomitant]
     Active Substance: CETIRIZINE HYDROCHLORIDE
     Indication: PRODUCT USED FOR UNKNOWN INDICATION
     Dosage: UNK
     Route: 065
  5. IPILIMUMAB [Suspect]
     Active Substance: IPILIMUMAB
     Indication: MALIGNANT MELANOMA
     Dosage: 208.5 MILLIGRAM, Q3WK
     Route: 065
     Dates: start: 20191108, end: 20200117

REACTIONS (12)
  - Mucosal inflammation [Not Recovered/Not Resolved]
  - Dry skin [Not Recovered/Not Resolved]
  - Transaminases increased [Recovered/Resolved]
  - Rash pruritic [Recovered/Resolved]
  - Lipase increased [Recovered/Resolved]
  - Deep vein thrombosis [Recovered/Resolved]
  - Arthralgia [Recovered/Resolved]
  - Upper respiratory tract infection [Recovered/Resolved]
  - Colitis [Recovered/Resolved]
  - Immune-mediated hepatitis [Not Recovered/Not Resolved]
  - Amylase increased [Recovered/Resolved]
  - Limb discomfort [Unknown]

NARRATIVE: CASE EVENT DATE: 20191115
